FAERS Safety Report 5584303-3 (Version None)
Quarter: 2008Q1

REPORT INFORMATION
  Report Type: 
  Country: None (occurrence: None)
  Receive Date: 20080104
  Receipt Date: 20080104
  Transmission Date: 20080703
  Serious: Yes (Hospitalization)
  Sender: FDA-Public Use
  Company Number: None

PATIENT
  Age: 19 Year
  Sex: Male

DRUGS (1)
  1. ACCUTANE [Suspect]
     Dosage: STANDARD AMOUNT
     Dates: start: 20050201, end: 20050901

REACTIONS (4)
  - ANXIETY [None]
  - CRYING [None]
  - DEPRESSION [None]
  - SUICIDAL IDEATION [None]
